FAERS Safety Report 8263359-3 (Version None)
Quarter: 2012Q2

REPORT INFORMATION
  Report Type: 
  Country: None (occurrence: None)
  Receive Date: 20120405
  Receipt Date: 20120326
  Transmission Date: 20120825
  Serious: Yes (Life-Threatening, Hospitalization, Disabling)
  Sender: FDA-Public Use
  Company Number: DE-TEVA-330759GER

PATIENT
  Age: 3 Year

DRUGS (4)
  1. ETOPOSIDE [Interacting]
     Indication: MEDULLOBLASTOMA
     Dosage: HIT 2000 MET-BIS4 PROTOCOL
     Route: 065
  2. CARBOPLATIN [Suspect]
     Indication: MEDULLOBLASTOMA
     Dosage: HIT 2000 MET-BIS4 PROTOCOL
     Route: 065
  3. CYCLOPHOSPHAMIDE [Interacting]
     Indication: MEDULLOBLASTOMA
     Dosage: HIT 2000 MET-BIS4 PROTOCOL
     Route: 065
  4. THIOTEPA [Interacting]
     Indication: MEDULLOBLASTOMA
     Dosage: HIT 2000 MET-BIS4 PROTOCOL
     Route: 065

REACTIONS (2)
  - RESPIRATORY FAILURE [None]
  - DRUG INTERACTION [None]
